APPROVED DRUG PRODUCT: GLYRX-PF
Active Ingredient: GLYCOPYRROLATE
Strength: 0.6MG/3ML (0.2MG/ML)
Dosage Form/Route: SOLUTION;INTRAMUSCULAR, INTRAVENOUS
Application: N210997 | Product #004
Applicant: EXELA PHARMA SCIENCES LLC
Approved: Dec 14, 2020 | RLD: Yes | RS: No | Type: DISCN